FAERS Safety Report 5745680-3 (Version None)
Quarter: 2008Q2

REPORT INFORMATION
  Report Type: 
  Country: None (occurrence: None)
  Receive Date: 20080521
  Receipt Date: 20080516
  Transmission Date: 20081010
  Serious: Yes (Hospitalization)
  Sender: FDA-Public Use
  Company Number: JP-BOEHRINGER INGELHEIM GMBH, GERMANY-2008-BP-06588NB

PATIENT
  Sex: Female
  Weight: 45.2 kg

DRUGS (7)
  1. MICARDIS [Suspect]
     Indication: HYPERTENSION
     Route: 048
     Dates: start: 20070219
  2. LASIX [Concomitant]
     Indication: HYPERTENSION
     Route: 048
  3. FAMOSTAGINE [Concomitant]
     Indication: PROPHYLAXIS
     Route: 048
  4. ASPIRIN [Concomitant]
     Indication: PROPHYLAXIS
     Route: 048
  5. ALDACTONE [Concomitant]
     Route: 048
  6. ALLOPURINOL [Concomitant]
     Route: 048
  7. LIVALO [Concomitant]
     Route: 048

REACTIONS (1)
  - CARDIAC FAILURE [None]
